FAERS Safety Report 15391704 (Version 2)
Quarter: 2023Q1

REPORT INFORMATION
  Report Type: Spontaneous
  Country: US (occurrence: US)
  Receive Date: 20180917
  Receipt Date: 20230124
  Transmission Date: 20230417
  Serious: No
  Sender: FDA-Public Use
  Company Number: US-TEVA-2018-US-953921

PATIENT
  Sex: Female

DRUGS (1)
  1. CLONAZEPAM [Suspect]
     Active Substance: CLONAZEPAM
     Indication: Panic disorder
     Dates: end: 20180908

REACTIONS (4)
  - Pruritus [Not Recovered/Not Resolved]
  - Panic attack [Unknown]
  - Rash [Unknown]
  - Drug ineffective [Unknown]
